FAERS Safety Report 17684072 (Version 2)
Quarter: 2020Q2

REPORT INFORMATION
  Report Type: Spontaneous
  Country: US (occurrence: US)
  Receive Date: 20200420
  Receipt Date: 20200510
  Transmission Date: 20200714
  Serious: No
  Sender: FDA-Public Use
  Company Number: US-ASTRAZENECA-2020SE44602

PATIENT
  Age: 797 Month
  Sex: Male
  Weight: 65.3 kg

DRUGS (2)
  1. SYMBICORT [Suspect]
     Active Substance: BUDESONIDE\FORMOTEROL FUMARATE DIHYDRATE
     Indication: ASTHMA
     Dosage: 160/4.5MCG 2 PUFFS TWICE DAILY
     Route: 055
     Dates: start: 2016
  2. SYMBICORT [Suspect]
     Active Substance: BUDESONIDE\FORMOTEROL FUMARATE DIHYDRATE
     Indication: CHRONIC OBSTRUCTIVE PULMONARY DISEASE
     Dosage: 160/4.5MCG 2 PUFFS TWICE DAILY
     Route: 055
     Dates: start: 2016

REACTIONS (6)
  - Therapeutic product effect decreased [Unknown]
  - Product taste abnormal [Unknown]
  - Chronic obstructive pulmonary disease [Unknown]
  - Intentional device misuse [Unknown]
  - Device failure [Unknown]
  - Product use issue [Unknown]

NARRATIVE: CASE EVENT DATE: 202003
